FAERS Safety Report 20920228 (Version 1)
Quarter: 2022Q2

REPORT INFORMATION
  Report Type: Spontaneous
  Country: IT (occurrence: None)
  Receive Date: 20220606
  Receipt Date: 20220606
  Transmission Date: 20220721
  Serious: Yes (Other)
  Sender: FDA-Public Use
  Company Number: 2022A200299

PATIENT
  Age: 78 Year
  Sex: Male
  Weight: 75 kg

DRUGS (1)
  1. QUETIAPINE [Suspect]
     Active Substance: QUETIAPINE
     Route: 048
     Dates: start: 20220411, end: 20220415

REACTIONS (3)
  - Laryngeal oedema [Unknown]
  - Headache [Unknown]
  - Cough [Unknown]

NARRATIVE: CASE EVENT DATE: 20220411
